FAERS Safety Report 8091468-0 (Version None)
Quarter: 2012Q1

REPORT INFORMATION
  Report Type: 
  Country: None (occurrence: None)
  Receive Date: 20120129
  Receipt Date: 20111102
  Transmission Date: 20120608
  Serious: Yes (Other)
  Sender: FDA-Public Use
  Company Number: US-ABBOTT-11P-163-0871319-00

PATIENT
  Age: 54 Year
  Sex: Male

DRUGS (10)
  1. PLAVIX [Concomitant]
     Indication: PRODUCT USED FOR UNKNOWN INDICATION
     Dates: start: 20100301
  2. TOPROL-XL [Concomitant]
     Indication: PRODUCT USED FOR UNKNOWN INDICATION
     Dates: start: 20100301
  3. VIT D3 [Concomitant]
     Indication: VITAMIN SUPPLEMENTATION
     Dosage: EVERY MORNING AND EVENING
     Route: 048
  4. ASPIRIN [Concomitant]
     Indication: PRODUCT USED FOR UNKNOWN INDICATION
  5. VITAMIN TAB [Concomitant]
     Indication: VITAMIN SUPPLEMENTATION
     Route: 048
  6. MILK THISTLE [Concomitant]
     Indication: PHYTOTHERAPY
     Route: 048
  7. HUMIRA [Suspect]
     Indication: PSORIATIC ARTHROPATHY
     Dates: start: 20090106
  8. MAGNESIUM [Concomitant]
     Indication: PRODUCT USED FOR UNKNOWN INDICATION
  9. COQ-10 [Concomitant]
     Indication: ENZYME SUPPLEMENTATION
     Route: 048
  10. RAMIPRIL [Concomitant]
     Indication: BLOOD PRESSURE
     Route: 048

REACTIONS (3)
  - SQUAMOUS CELL CARCINOMA OF SKIN [None]
  - IMPAIRED HEALING [None]
  - SKIN CANCER [None]
